FAERS Safety Report 9411379 (Version 1)
Quarter: 2013Q3

REPORT INFORMATION
  Report Type: Spontaneous
  Country: AT (occurrence: AT)
  Receive Date: 20130722
  Receipt Date: 20130722
  Transmission Date: 20140515
  Serious: Yes (Hospitalization)
  Sender: FDA-Public Use
  Company Number: PHHY2013AT075875

PATIENT
  Age: 52 Year
  Sex: Male
  Weight: 130 kg

DRUGS (2)
  1. EBETREXAT [Suspect]
     Indication: PSORIATIC ARTHROPATHY
     Dosage: 20 MG, QW
     Route: 058
  2. ENBREL [Suspect]
     Indication: PSORIATIC ARTHROPATHY
     Dosage: 25 MG, TWICE PER WEEK
     Route: 058

REACTIONS (1)
  - Gastrooesophageal reflux disease [Recovered/Resolved]
